FAERS Safety Report 25147010 (Version 3)
Quarter: 2025Q2

REPORT INFORMATION
  Report Type: Spontaneous
  Country: FI (occurrence: FI)
  Receive Date: 20250401
  Receipt Date: 20250411
  Transmission Date: 20250717
  Serious: Yes (Hospitalization, Other)
  Sender: BRISTOL MYERS SQUIBB
  Company Number: FI-BRISTOL-MYERS SQUIBB COMPANY-2025-047576

PATIENT
  Age: 80 Year
  Sex: Male

DRUGS (6)
  1. ELIQUIS [Suspect]
     Active Substance: APIXABAN
     Indication: Product used for unknown indication
     Dosage: 2.5 MG, 2X/DAY
  2. VYNDAQEL [Suspect]
     Active Substance: TAFAMIDIS MEGLUMINE
     Indication: Cardiac amyloidosis
     Dates: start: 202301
  3. LINAGLIPTIN [Concomitant]
     Active Substance: LINAGLIPTIN
     Indication: Product used for unknown indication
  4. DAPAGLIFLOZIN [Concomitant]
     Active Substance: DAPAGLIFLOZIN
     Indication: Product used for unknown indication
     Dosage: 10 MG, 1X/DAY
  5. LANTUS [Concomitant]
     Active Substance: INSULIN GLARGINE
     Indication: Product used for unknown indication
  6. LANTUS [Concomitant]
     Active Substance: INSULIN GLARGINE

REACTIONS (4)
  - Aortic stenosis [Recovered/Resolved]
  - COVID-19 [Unknown]
  - Infection [Recovered/Resolved]
  - Cardiac failure [Unknown]

NARRATIVE: CASE EVENT DATE: 20230101
